FAERS Safety Report 4971782-5 (Version None)
Quarter: 2006Q2

REPORT INFORMATION
  Report Type: 
  Country: None (occurrence: None)
  Receive Date: 20060413
  Receipt Date: 20060406
  Transmission Date: 20061013
  Serious: Yes (Other)
  Sender: FDA-Public Use
  Company Number: 2006UW06125

PATIENT
  Age: 16885 Day
  Sex: Female
  Weight: 92.7 kg

DRUGS (8)
  1. IRESSA [Suspect]
     Indication: METASTATIC RENAL CELL CARCINOMA
     Route: 048
     Dates: start: 20060206, end: 20060316
  2. PEGYLATED INTERFERON ALFA 2B [Suspect]
     Indication: METASTATIC RENAL CELL CARCINOMA
     Route: 058
     Dates: start: 20060206, end: 20060316
  3. DIAZEPAM [Concomitant]
  4. BENZONATATE [Concomitant]
  5. OMEPRAZOLE [Concomitant]
  6. ZOLOFT [Concomitant]
  7. HYDROCODONE [Concomitant]
  8. DOC-Q-LACE [Concomitant]

REACTIONS (4)
  - HYPOKALAEMIA [None]
  - LYMPHOPENIA [None]
  - NEUTROPHIL COUNT DECREASED [None]
  - WHITE BLOOD CELL COUNT DECREASED [None]
